FAERS Safety Report 19876926 (Version 1)
Quarter: 2021Q3

REPORT INFORMATION
  Report Type: Spontaneous
  Country: DE (occurrence: DE)
  Receive Date: 20210924
  Receipt Date: 20210924
  Transmission Date: 20211014
  Serious: Yes (Hospitalization, Other)
  Sender: FDA-Public Use
  Company Number: DE-TEVA-2021-DE-1955989

PATIENT
  Age: 46 Year
  Sex: Female
  Weight: 71 kg

DRUGS (19)
  1. EPI TEVA [Suspect]
     Active Substance: EPIRUBICIN HYDROCHLORIDE
     Dosage: UNIT DOSE :50 MG ,IN NACL 0.9% FREEFLEX PLUS 250ML,PZN?05505880
     Dates: start: 20210608
  2. NEOTAXAN [Suspect]
     Active Substance: PACLITAXEL
     Dosage: UNIT DOSE :300 MG ,IN NACL 0.9% FREEFLEX PLUS 250ML
     Dates: start: 20210802
  3. CARBOMEDAC 10 MG/ML INFUSIONSLOSUNG [Suspect]
     Active Substance: CARBOPLATIN
     Indication: TRIPLE NEGATIVE BREAST CANCER
     Dosage: UNIT DOSE :600 MG ,IN GLUCOSE 5% 500ML FREEFLEX PLUS,PZN?03063188 ,THERAPY INTERRUPTED
     Dates: start: 20210802
  4. ENDOXAN 1000MG [Suspect]
     Active Substance: CYCLOPHOSPHAMIDE
     Dosage: UNIT DOSE :1000 MG ,IN NACL 0.9% FREEFLEX PLUS 500ML
     Dates: start: 20210719
  5. VIMPAT [Concomitant]
     Active Substance: LACOSAMIDE
     Dosage: 200 MILLIGRAM DAILY; 1?0?1
  6. FARMORUBICIN 50 MG HL PULVER Z.HERST.E.INJ.?LSG [Suspect]
     Active Substance: EPIRUBICIN HYDROCHLORIDE
     Dosage: IN NACL 0.9% FREEFLEX PLUS 250ML,PZN?00759966
     Dates: start: 20210719
  7. NEOTAXAN [Suspect]
     Active Substance: PACLITAXEL
     Indication: TRIPLE NEGATIVE BREAST CANCER
     Dosage: UNIT DOSE :300 MG ,IN NACL 0.9% FREEFLEX PLUS 250ML,PZN?03063188 THERAPY INTERRUPTED
     Dates: start: 20210809
  8. ENDOXAN 1000MG [Suspect]
     Active Substance: CYCLOPHOSPHAMIDE
     Dosage: UNIT DOSE :1000 MG ,IN NACL 0.9% FREEFLEX PLUS 500ML,PZN 00334528
     Dates: start: 20210608
  9. ENDOXAN 1000MG [Suspect]
     Active Substance: CYCLOPHOSPHAMIDE
     Dosage: UNIT DOSE :1000 MG ,IN NACL 0.9% FREEFLEX PLUS 500ML
     Dates: start: 20210621
  10. EPI TEVA [Suspect]
     Active Substance: EPIRUBICIN HYDROCHLORIDE
     Dosage: UNIT DOSE :50 MG  ,N NACL 0.9% FREEFLEX PLUS 250ML,PZN?05505880
     Dates: start: 20210621
  11. LAMOTRIGIN 75MG [Concomitant]
     Dosage: 150 MILLIGRAM DAILY; 1?0?1
  12. DEXAMETHASON [Concomitant]
     Active Substance: DEXAMETHASONE
  13. AKYNZEO [Concomitant]
     Active Substance: NETUPITANT\PALONOSETRON HYDROCHLORIDE
     Dosage: WITH CARBOPLATIN AND EC
  14. MELPERON 25MG [Concomitant]
     Active Substance: MELPERONE
     Dosage: UNIT DOSE :150 MG ,1?1?2?2
  15. EPI TEVA [Suspect]
     Active Substance: EPIRUBICIN HYDROCHLORIDE
     Dosage: UNIT DOSE :50 MG  ,N NACL 0.9% FREEFLEX PLUS 250ML
     Dates: start: 20210706
  16. ENDOXAN 1000MG [Suspect]
     Active Substance: CYCLOPHOSPHAMIDE
     Dosage: UNIT DOSE :1000 MG ,IN NACL 0.9% FREEFLEX PLUS 500ML
     Dates: start: 20210706
  17. FAMOTIDIN [Concomitant]
     Active Substance: FAMOTIDINE
  18. TAVEGIL [Concomitant]
     Active Substance: CLEMASTINE FUMARATE
  19. LONQUEX [Concomitant]
     Active Substance: LIPEGFILGRASTIM
     Dosage: FOR EACH OF THE 4 EC CYCLES ON THE DAY AFTER THE CHEMO 1 FS LONQUEX S.C.
     Route: 058

REACTIONS (1)
  - Pancytopenia [Not Recovered/Not Resolved]

NARRATIVE: CASE EVENT DATE: 20210802
